FAERS Safety Report 4723153-4 (Version None)
Quarter: 2005Q3

REPORT INFORMATION
  Report Type: 
  Country: None (occurrence: None)
  Receive Date: 20050719
  Receipt Date: 20040723
  Transmission Date: 20060218
  Serious: Yes (Other)
  Sender: FDA-Public Use
  Company Number: 2004225274US

PATIENT
  Age: 49 Year
  Sex: Female
  Weight: 90.7 kg

DRUGS (8)
  1. CELEBREX [Suspect]
     Indication: RHEUMATOID ARTHRITIS
     Dosage: 200 MG, BID, ORAL
     Route: 048
     Dates: start: 20040720
  2. VALIUM [Concomitant]
  3. PROZAC [Concomitant]
  4. CLARITIN [Concomitant]
  5. MONTELUKAST (MONTELUKAST) [Concomitant]
  6. METOCLOPRAMIDE [Concomitant]
  7. MONOPRIL [Concomitant]
  8. PRILOSEC [Concomitant]

REACTIONS (3)
  - ABDOMINAL PAIN [None]
  - HAEMATOCHEZIA [None]
  - NAUSEA [None]
